FAERS Safety Report 6626639-0 (Version None)
Quarter: 2010Q1

REPORT INFORMATION
  Report Type: 
  Country: None (occurrence: None)
  Receive Date: 20100310
  Receipt Date: 20100226
  Transmission Date: 20100710
  Serious: Yes (Other)
  Sender: FDA-Public Use
  Company Number: JP-GENENTECH-296664

PATIENT
  Sex: Male

DRUGS (4)
  1. RANIBIZUMAB [Suspect]
     Indication: POLYPOIDAL CHOROIDAL VASCULOPATHY
     Dosage: 0.05 ML, UNK
     Route: 031
     Dates: start: 20090713
  2. RANIBIZUMAB [Suspect]
     Dosage: 0.05 ML, UNK
     Route: 031
     Dates: start: 20090810
  3. RANIBIZUMAB [Suspect]
     Dosage: 0.05 UNK, UNK
     Route: 031
     Dates: start: 20090907
  4. MACUGEN [Concomitant]
     Indication: DRUG USE FOR UNKNOWN INDICATION
     Dosage: UNK
     Dates: start: 20081201, end: 20090301

REACTIONS (1)
  - VITREOUS HAEMORRHAGE [None]
